FAERS Safety Report 5205595-6 (Version None)
Quarter: 2006Q4

REPORT INFORMATION
  Report Type: 
  Country: None (occurrence: None)
  Receive Date: 20061027
  Receipt Date: 20060731
  Transmission Date: 20070319
  Serious: No
  Sender: FDA-Public Use
  Company Number: POMP-10794

PATIENT
  Age: 11 Month
  Sex: Male
  Weight: 7.6 kg

DRUGS (4)
  1. MYOZYME [Suspect]
     Indication: GLYCOGEN STORAGE DISEASE TYPE II
     Dosage: 20 MG/KG Q2WKS; IV
     Route: 042
     Dates: start: 20060522
  2. MYOZYME [Suspect]
     Indication: GLYCOGEN STORAGE DISEASE TYPE II
     Dosage: 20 MG/KG Q2WKS; IV
     Route: 042
     Dates: start: 20060208, end: 20060511
  3. BENADRYL [Concomitant]
  4. TYLENOL [Concomitant]

REACTIONS (3)
  - HEART RATE INCREASED [None]
  - PYREXIA [None]
  - TREMOR [None]
